FAERS Safety Report 7796699-2 (Version None)
Quarter: 2011Q4

REPORT INFORMATION
  Report Type: 
  Country: None (occurrence: None)
  Receive Date: 20111005
  Receipt Date: 20110927
  Transmission Date: 20120403
  Serious: Yes (Death, Hospitalization)
  Sender: FDA-Public Use
  Company Number: US-UCBSA-039279

PATIENT
  Sex: Male

DRUGS (1)
  1. KEPPRA XR [Suspect]
     Dosage: 500 MG
     Dates: end: 20110502

REACTIONS (1)
  - ALCOHOL ABUSE [None]
